FAERS Safety Report 12927942 (Version 1)
Quarter: 2016Q4

REPORT INFORMATION
  Report Type: Spontaneous
  Country: US (occurrence: US)
  Receive Date: 20161110
  Receipt Date: 20161110
  Transmission Date: 20170207
  Serious: Yes (Hospitalization)
  Sender: FDA-Public Use
  Company Number: None

PATIENT
  Age: 84 Year
  Sex: Female
  Weight: 78.9 kg

DRUGS (10)
  1. LISINOPRIL. [Suspect]
     Active Substance: LISINOPRIL
     Indication: HYPERTENSION
     Dosage: CHRONIC
     Route: 048
  2. CALTRATE [Concomitant]
     Active Substance: CALCIUM CARBONATE
  3. NEURONTI N [Concomitant]
  4. METFORMIN [Concomitant]
     Active Substance: METFORMIN HYDROCHLORIDE
  5. MVI [Concomitant]
     Active Substance: VITAMINS
  6. APAP [Concomitant]
     Active Substance: ACETAMINOPHEN
  7. GLPI IZIDE [Concomitant]
  8. ECOTRIN [Concomitant]
     Active Substance: ASPIRIN
  9. ZOCOR [Concomitant]
     Active Substance: SIMVASTATIN
  10. NORVASC [Concomitant]
     Active Substance: AMLODIPINE BESYLATE

REACTIONS (2)
  - Hyperkalaemia [None]
  - Rebound effect [None]

NARRATIVE: CASE EVENT DATE: 20150909
